FAERS Safety Report 17024419 (Version 7)
Quarter: 2020Q4

REPORT INFORMATION
  Report Type: Report from Study
  Country: None (occurrence: US)
  Receive Date: 20191113
  Receipt Date: 20201223
  Transmission Date: 20210113
  Serious: Yes (Other)
  Sender: FDA-Public Use
  Company Number: US-ABBVIE-17K-163-1875850-00

PATIENT
  Sex: Male

DRUGS (5)
  1. HUMIRA [Suspect]
     Active Substance: ADALIMUMAB
     Indication: COLITIS ULCERATIVE
     Dosage: CITRATE FREE
     Route: 058
  2. HUMIRA [Suspect]
     Active Substance: ADALIMUMAB
     Dosage: CITRATE FREE
     Route: 058
  3. HUMIRA [Suspect]
     Active Substance: ADALIMUMAB
     Dosage: CITRATE FREE
     Route: 058
  4. HUMIRA [Suspect]
     Active Substance: ADALIMUMAB
     Dosage: CITRATE FREE
     Route: 058
  5. HUMIRA [Suspect]
     Active Substance: ADALIMUMAB
     Indication: INFLAMMATION
     Dosage: CITRATE FREE
     Route: 058

REACTIONS (25)
  - Prostate cancer [Not Recovered/Not Resolved]
  - Dysstasia [Unknown]
  - Malaise [Unknown]
  - Memory impairment [Not Recovered/Not Resolved]
  - Colitis ulcerative [Not Recovered/Not Resolved]
  - Nephropathy [Unknown]
  - Eczema [Unknown]
  - Rib fracture [Not Recovered/Not Resolved]
  - Cough [Unknown]
  - Thrombocytopenia [Not Recovered/Not Resolved]
  - Localised infection [Unknown]
  - Influenza like illness [Recovering/Resolving]
  - Radiation sickness syndrome [Unknown]
  - Pneumonitis [Not Recovered/Not Resolved]
  - Influenza [Unknown]
  - Injection site haemorrhage [Unknown]
  - Osteonecrosis of jaw [Unknown]
  - Drug level decreased [Unknown]
  - Bronchitis [Unknown]
  - Fatigue [Recovering/Resolving]
  - Radiation injury [Unknown]
  - Exposed bone in jaw [Unknown]
  - Stress [Unknown]
  - Osteoporosis [Unknown]
  - Colitis ulcerative [Recovered/Resolved]

NARRATIVE: CASE EVENT DATE: 2015
